FAERS Safety Report 4688618-2 (Version None)
Quarter: 2005Q2

REPORT INFORMATION
  Report Type: 
  Country: None (occurrence: None)
  Receive Date: 20050608
  Receipt Date: 20050407
  Transmission Date: 20051028
  Serious: No
  Sender: FDA-Public Use
  Company Number: 2005-BP-05912BP

PATIENT
  Age: 69 Year
  Sex: Male

DRUGS (2)
  1. SPIRIVA [Suspect]
     Indication: CHRONIC OBSTRUCTIVE PULMONARY DISEASE
     Dosage: 18 MG (18 MG, 1 IN 1 D), IH
     Route: 055
     Dates: start: 20040101
  2. OXYGEN (OXYGEN) [Concomitant]

REACTIONS (1)
  - DRUG INEFFECTIVE [None]
